FAERS Safety Report 20177227 (Version 7)
Quarter: 2023Q2

REPORT INFORMATION
  Report Type: Report from Study
  Country: CO (occurrence: CO)
  Receive Date: 20211213
  Receipt Date: 20230630
  Transmission Date: 20230722
  Serious: Yes (Hospitalization, Other)
  Sender: FDA-Public Use
  Company Number: CO-NOVARTISPH-NVSC2021CO284043

PATIENT
  Sex: Female

DRUGS (4)
  1. ELTROMBOPAG OLAMINE [Suspect]
     Active Substance: ELTROMBOPAG OLAMINE
     Indication: Immune thrombocytopenia
     Dosage: 50 MG, QD
     Route: 048
  2. ELTROMBOPAG OLAMINE [Suspect]
     Active Substance: ELTROMBOPAG OLAMINE
     Dosage: UNK, QD
     Route: 048
  3. ELTROMBOPAG OLAMINE [Suspect]
     Active Substance: ELTROMBOPAG OLAMINE
     Dosage: 75 MG (3 OF 25 MG), QD
     Route: 048
  4. ELTROMBOPAG OLAMINE [Suspect]
     Active Substance: ELTROMBOPAG OLAMINE
     Dosage: 25 MG, QD
     Route: 048

REACTIONS (6)
  - Platelet count decreased [Unknown]
  - COVID-19 [Unknown]
  - Fatigue [Unknown]
  - Heavy menstrual bleeding [Unknown]
  - Product dose omission issue [Unknown]
  - Wrong technique in product usage process [Unknown]
